FAERS Safety Report 4819995-7 (Version None)
Quarter: 2005Q4

REPORT INFORMATION
  Report Type: 
  Country: None (occurrence: None)
  Receive Date: 20051027
  Receipt Date: 20050310
  Transmission Date: 20060501
  Serious: Yes (Hospitalization)
  Sender: FDA-Public Use
  Company Number: HQWYE057611MAR05

PATIENT
  Age: 48 Year
  Sex: Female
  Weight: 61.29 kg

DRUGS (1)
  1. PREMARIN [Suspect]
     Indication: ARTIFICIAL MENOPAUSE

REACTIONS (4)
  - BACK PAIN [None]
  - EMOTIONAL DISORDER [None]
  - HYPERTROPHY BREAST [None]
  - MUSCLE SPASMS [None]
